FAERS Safety Report 4515038-3 (Version None)
Quarter: 2004Q4

REPORT INFORMATION
  Report Type: 
  Country: None (occurrence: None)
  Receive Date: 20041129
  Receipt Date: 20041129
  Transmission Date: 20050328
  Serious: No
  Sender: FDA-Public Use
  Company Number: None

PATIENT
  Age: 57 Year
  Sex: Female
  Weight: 68.0396 kg

DRUGS (1)
  1. ZICAM  ZINCUM GLUCONICUM 2X   ZICAM LLC [Suspect]
     Dosage: USED ONCE

REACTIONS (6)
  - AGEUSIA [None]
  - ANOSMIA [None]
  - BURNING SENSATION [None]
  - FEELING ABNORMAL [None]
  - NERVOUS SYSTEM DISORDER [None]
  - PAIN [None]
